FAERS Safety Report 8615349-6 (Version None)
Quarter: 2012Q3

REPORT INFORMATION
  Report Type: 
  Country: None (occurrence: None)
  Receive Date: 20120823
  Receipt Date: 20120816
  Transmission Date: 20120928
  Serious: Yes (Other)
  Sender: FDA-Public Use
  Company Number: US-FRI-1000037901

PATIENT
  Age: 64 Year
  Sex: Female

DRUGS (7)
  1. DALIRESP [Suspect]
     Indication: CHRONIC OBSTRUCTIVE PULMONARY DISEASE
     Dosage: 500 MCG
     Route: 048
     Dates: start: 20120401, end: 20120401
  2. SPIRIVA [Concomitant]
  3. METOPROLOL TARTRATE [Concomitant]
     Indication: HYPERTENSION
  4. CLONAZEPAM [Concomitant]
  5. ALPRAZOLAM [Concomitant]
  6. ATORVASTATIN [Concomitant]
  7. ALBUTEROL [Concomitant]

REACTIONS (1)
  - MOUTH HAEMORRHAGE [None]
